FAERS Safety Report 25764618 (Version 1)
Quarter: 2025Q3

REPORT INFORMATION
  Report Type: Report from Study
  Country: ZA (occurrence: ZA)
  Receive Date: 20250905
  Receipt Date: 20250905
  Transmission Date: 20251020
  Serious: Yes (Other)
  Sender: ALEXION PHARMACEUTICALS
  Company Number: ZA-AstraZeneca-CH-00862261A

PATIENT
  Age: 80 Year
  Sex: Male

DRUGS (7)
  1. DAPAGLIFLOZIN [Suspect]
     Active Substance: DAPAGLIFLOZIN
     Indication: Diabetes mellitus
  2. CARVEDILOL [Concomitant]
     Active Substance: CARVEDILOL
     Indication: Hypertension
  3. Spiractin [Concomitant]
     Indication: Hypertension
  4. THIAMINE [Concomitant]
     Active Substance: THIAMINE
  5. Uromax [Concomitant]
     Indication: Prostatomegaly
  6. LYRICA [Concomitant]
     Active Substance: PREGABALIN
     Indication: Epilepsy
  7. ECOTRIN [Concomitant]
     Active Substance: ASPIRIN

REACTIONS (2)
  - Gait inability [Unknown]
  - Depressed mood [Unknown]
